FAERS Safety Report 7664433-2 (Version None)
Quarter: 2011Q3

REPORT INFORMATION
  Report Type: 
  Country: None (occurrence: None)
  Receive Date: 20110806
  Receipt Date: 20110103
  Transmission Date: 20111222
  Serious: No
  Sender: FDA-Public Use
  Company Number: US-ABBOTT-11P-163-0695006-00

PATIENT
  Sex: Female
  Weight: 73.094 kg

DRUGS (10)
  1. LEVOTHYROXINE SODIUM [Concomitant]
     Indication: HYPOTHYROIDISM
  2. DIOVAN [Concomitant]
     Indication: HYPERTENSION
  3. SIMVASTATIN [Concomitant]
     Indication: BLOOD CHOLESTEROL INCREASED
  4. JUICE PLUS [Concomitant]
     Indication: VITAMIN SUPPLEMENTATION
  5. NIASPAN [Suspect]
     Dates: start: 20101001
  6. FIBER TAB [Concomitant]
     Indication: CONSTIPATION
  7. ASPIRIN [Concomitant]
     Indication: CARDIAC DISORDER
  8. NIASPAN [Suspect]
     Indication: BLOOD CHOLESTEROL INCREASED
     Dates: start: 20100401, end: 20101001
  9. PHENAZOPYRIDINE HCL TAB [Suspect]
     Indication: URINARY TRACT INFECTION
     Dates: start: 20101201
  10. GLUCOSAMINE W/CHONDROITIN [Concomitant]
     Indication: OSTEOARTHRITIS

REACTIONS (4)
  - COUGH [None]
  - UPPER-AIRWAY COUGH SYNDROME [None]
  - NASOPHARYNGITIS [None]
  - PHOTOSENSITIVITY REACTION [None]
